FAERS Safety Report 5829186-9 (Version None)
Quarter: 2008Q3

REPORT INFORMATION
  Report Type: 
  Country: None (occurrence: None)
  Receive Date: 20080731
  Receipt Date: 20080723
  Transmission Date: 20090109
  Serious: Yes (Disabling)
  Sender: FDA-Public Use
  Company Number: US-GENENTECH-262236

PATIENT
  Sex: Male
  Weight: 109.75 kg

DRUGS (9)
  1. RITUXAN [Suspect]
     Indication: NON-HODGKIN'S LYMPHOMA
     Dosage: UNK, DAY 1 OF 21 DAY CYCLES
     Route: 042
     Dates: start: 20061211
  2. RITUXAN [Suspect]
     Dosage: 750 MG, 1/WEEK, 4 DOSES
     Route: 042
     Dates: start: 20071004
  3. CYCLOPHOSPHAMIDE [Concomitant]
     Indication: NON-HODGKIN'S LYMPHOMA
     Dates: start: 20061212
  4. DOXORUBICIN HCL [Concomitant]
     Indication: NON-HODGKIN'S LYMPHOMA
  5. VINCRISTINE [Concomitant]
     Indication: NON-HODGKIN'S LYMPHOMA
     Dates: start: 20061212
  6. PREDNISONE [Concomitant]
     Indication: NON-HODGKIN'S LYMPHOMA
     Dates: start: 20061212
  7. BENADRYL [Concomitant]
     Indication: PREMEDICATION
  8. TYLENOL [Concomitant]
     Indication: PREMEDICATION
  9. OTHER MEDICATION [Concomitant]
     Indication: DRUG USE FOR UNKNOWN INDICATION

REACTIONS (1)
  - MENIERE'S DISEASE [None]
